FAERS Safety Report 15329377 (Version 2)
Quarter: 2018Q3

REPORT INFORMATION
  Report Type: Spontaneous
  Country: US (occurrence: US)
  Receive Date: 20180829
  Receipt Date: 20180928
  Transmission Date: 20181010
  Serious: No
  Sender: FDA-Public Use
  Company Number: US-VERTEX PHARMACEUTICALS-2018-006177

PATIENT
  Age: 20 Year
  Sex: Female
  Weight: 88 kg

DRUGS (30)
  1. AMITRIPTYLIN [Concomitant]
     Active Substance: AMITRIPTYLINE
  2. GABAPENTIN. [Concomitant]
     Active Substance: GABAPENTIN
  3. VITAMIN K [Concomitant]
     Active Substance: PHYTONADIONE
  4. SYMDEKO [Suspect]
     Active Substance: IVACAFTOR\TEZACAFTOR
     Indication: CYSTIC FIBROSIS
     Dosage: 1 YELLOW TAB IN AM ON MON + FRIDAYS
     Route: 048
     Dates: start: 20180727
  5. CELECOXIB. [Concomitant]
     Active Substance: CELECOXIB
  6. DORNASE [Concomitant]
     Active Substance: STREPTODORNASE\STREPTOKINASE
  7. HIZENTRA [Concomitant]
     Active Substance: HUMAN IMMUNOGLOBULIN G
  8. LOSARTAN. [Concomitant]
     Active Substance: LOSARTAN
  9. ZINC. [Concomitant]
     Active Substance: ZINC
  10. ALBUTEROL                          /00139501/ [Concomitant]
     Active Substance: ALBUTEROL
  11. CETRIZINE [Concomitant]
     Active Substance: CETIRIZINE HYDROCHLORIDE
  12. AQUADEKS                           /07679501/ [Concomitant]
     Active Substance: MINERALS\VITAMINS
  13. MIRALAX [Concomitant]
     Active Substance: POLYETHYLENE GLYCOL 3350
  14. SODIUM CHLORIDE. [Concomitant]
     Active Substance: SODIUM CHLORIDE
     Route: 045
  15. TOBRAMYCIN. [Concomitant]
     Active Substance: TOBRAMYCIN
     Route: 055
  16. POSACONAZOLE [Concomitant]
     Active Substance: POSACONAZOLE
     Dosage: UNK
  17. IBUPROFEN. [Concomitant]
     Active Substance: IBUPROFEN
  18. URSODIOL. [Concomitant]
     Active Substance: URSODIOL
  19. TYLENOL [Concomitant]
     Active Substance: ACETAMINOPHEN
  20. BETHANECHOL [Concomitant]
     Active Substance: BETHANECHOL
  21. INSULIN [Concomitant]
     Active Substance: INSULIN NOS
  22. MELATONIN [Concomitant]
     Active Substance: MELATONIN
  23. OMEPRAZOL                          /00661201/ [Concomitant]
     Active Substance: OMEPRAZOLE
  24. HYPERTONIC SALINE SOLUTION [Concomitant]
     Active Substance: SODIUM CHLORIDE
  25. COLISTIMETHATE                     /00013204/ [Concomitant]
     Active Substance: COLISTIMETHATE SODIUM
     Route: 055
  26. LANSOPRAZOLE. [Concomitant]
     Active Substance: LANSOPRAZOLE
  27. BIOTIN [Concomitant]
     Active Substance: BIOTIN
  28. VITAMIN D                          /00107901/ [Concomitant]
     Active Substance: ERGOCALCIFEROL
  29. LORATADINE. [Concomitant]
     Active Substance: LORATADINE
  30. ZENPEP [Concomitant]
     Active Substance: PANCRELIPASE AMYLASE\PANCRELIPASE LIPASE\PANCRELIPASE PROTEASE

REACTIONS (1)
  - Oedema peripheral [Recovered/Resolved]

NARRATIVE: CASE EVENT DATE: 20180821
